FAERS Safety Report 5839283-X (Version None)
Quarter: 2008Q3

REPORT INFORMATION
  Report Type: 
  Country: None (occurrence: None)
  Receive Date: 20080808
  Receipt Date: 20080729
  Transmission Date: 20090109
  Serious: Yes (Other)
  Sender: FDA-Public Use
  Company Number: US-PFIZER INC-2008063504

PATIENT
  Sex: Male
  Weight: 70.3 kg

DRUGS (7)
  1. ZYVOX [Suspect]
     Indication: INFECTION
     Route: 042
     Dates: start: 20080627, end: 20080629
  2. ZYVOX [Suspect]
     Indication: INFECTION
     Route: 048
     Dates: start: 20080629, end: 20080728
  3. COREG [Concomitant]
     Route: 048
  4. LINEZOLID [Concomitant]
     Route: 048
  5. LASIX [Concomitant]
     Route: 048
  6. DILTIAZEM HCL [Concomitant]
     Route: 048
  7. WARFARIN SODIUM [Concomitant]
     Route: 048

REACTIONS (6)
  - ASTHENIA [None]
  - DRY MOUTH [None]
  - DYSGEUSIA [None]
  - FATIGUE [None]
  - GAIT DISTURBANCE [None]
  - LACTIC ACIDOSIS [None]
